FAERS Safety Report 15282265 (Version 2)
Quarter: 2018Q3

REPORT INFORMATION
  Report Type: Spontaneous
  Country: IL (occurrence: IL)
  Receive Date: 20180815
  Receipt Date: 20180826
  Transmission Date: 20181010
  Serious: Yes (Other)
  Sender: FDA-Public Use
  Company Number: IL-BAXTER-2018BAX021431

PATIENT
  Age: 56 Year
  Sex: Female

DRUGS (4)
  1. MABTHERA [Suspect]
     Active Substance: RITUXIMAB
     Indication: CHRONIC LYMPHOCYTIC LEUKAEMIA
     Dosage: SOLUTION, 100MG/10ML; 10 ML
     Route: 042
     Dates: start: 20180725, end: 20180725
  2. MABTHERA [Suspect]
     Active Substance: RITUXIMAB
     Dosage: SOLUTION, 100MG/10ML; 10 ML
     Route: 042
     Dates: start: 20180726, end: 20180726
  3. NACL 0.9% INTRAVENOUS SOLUTION BP [Suspect]
     Active Substance: SODIUM CHLORIDE
     Indication: MEDICATION DILUTION
     Dosage: NACL 0.9% 100ML VIAFLO
     Route: 042
     Dates: start: 20180725, end: 20180725
  4. NACL 0.9% INTRAVENOUS SOLUTION BP [Suspect]
     Active Substance: SODIUM CHLORIDE
     Dosage: VIAFLO SODIUM CHLORIDE 0.9% INJ 500 ML
     Route: 042
     Dates: start: 20180726, end: 20180726

REACTIONS (8)
  - Hypersensitivity [Recovered/Resolved]
  - Throat irritation [Unknown]
  - Headache [Unknown]
  - Cough [Recovered/Resolved]
  - Dizziness [Recovered/Resolved]
  - Blood pressure increased [Unknown]
  - Erythema [Recovered/Resolved]
  - Pyrexia [Recovered/Resolved]

NARRATIVE: CASE EVENT DATE: 20180725
